FAERS Safety Report 21339876 (Version 1)
Quarter: 2022Q3

REPORT INFORMATION
  Report Type: Spontaneous
  Country: US (occurrence: US)
  Receive Date: 20220915
  Receipt Date: 20220915
  Transmission Date: 20221027
  Serious: Yes (Other)
  Sender: FDA-Public Use
  Company Number: US-PRINSTON PHARMACEUTICAL INC.-2022PRN00322

PATIENT
  Sex: Female
  Weight: 56.689 kg

DRUGS (9)
  1. PAROXETINE [Suspect]
     Active Substance: PAROXETINE
     Indication: Depression
     Dosage: 40 MG, 1X/DAY
     Route: 048
  2. PAROXETINE [Suspect]
     Active Substance: PAROXETINE
     Indication: Anxiety
  3. AMLODIPINE [Concomitant]
     Active Substance: AMLODIPINE BESYLATE
  4. OXYBUTYNIN [Concomitant]
     Active Substance: OXYBUTYNIN
  5. HYDROCHLOROTHIAZIDE [Concomitant]
     Active Substance: HYDROCHLOROTHIAZIDE
  6. LOSARTAN [Concomitant]
     Active Substance: LOSARTAN
  7. ATORVASTATIN [Concomitant]
     Active Substance: ATORVASTATIN
  8. NIFEDIPINE [Concomitant]
     Active Substance: NIFEDIPINE
  9. SODIUM BICARBONATE [Concomitant]
     Active Substance: SODIUM BICARBONATE

REACTIONS (6)
  - Chronic kidney disease [Not Recovered/Not Resolved]
  - Immobile [Recovered/Resolved]
  - Temperature intolerance [Recovered/Resolved]
  - Fatigue [Recovered/Resolved]
  - Hyperhidrosis [Not Recovered/Not Resolved]
  - Asthenia [Recovered/Resolved]

NARRATIVE: CASE EVENT DATE: 20200101
